FAERS Safety Report 23080823 (Version 1)
Quarter: 2023Q4

REPORT INFORMATION
  Report Type: Spontaneous
  Country: JP (occurrence: JP)
  Receive Date: 20231018
  Receipt Date: 20231018
  Transmission Date: 20240110
  Serious: Yes (Other)
  Sender: FDA-Public Use
  Company Number: JP-sbiph-S000149310P

PATIENT
  Age: 89 Year
  Sex: Male

DRUGS (11)
  1. AMINOLEVULINIC ACID HYDROCHLORIDE [Suspect]
     Active Substance: AMINOLEVULINIC ACID HYDROCHLORIDE
     Indication: Bladder cancer
     Route: 048
     Dates: start: 20230228, end: 20230228
  2. GLYCERIN [Suspect]
     Active Substance: GLYCERIN
     Route: 054
     Dates: start: 20230228
  3. LANSOPRAZOLE [Suspect]
     Active Substance: LANSOPRAZOLE
     Route: 048
     Dates: start: 20230210
  4. BISOPROLOL FUMARATE [Suspect]
     Active Substance: BISOPROLOL FUMARATE
     Route: 048
     Dates: start: 20230210
  5. EPLERENONE [Suspect]
     Active Substance: EPLERENONE
     Dates: start: 20230210
  6. AMLODIPINE [Suspect]
     Active Substance: AMLODIPINE BESYLATE
     Route: 048
     Dates: start: 20230210
  7. ROSUVASTATIN [Suspect]
     Active Substance: ROSUVASTATIN
     Dates: start: 20230210
  8. EDOXABAN TOSYLATE [Concomitant]
     Active Substance: EDOXABAN TOSYLATE
     Route: 048
     Dates: start: 20230210
  9. AMBROXOL HYDROCHLORIDE [Suspect]
     Active Substance: AMBROXOL HYDROCHLORIDE
     Route: 048
     Dates: start: 20230210
  10. TELMISARTAN [Suspect]
     Active Substance: TELMISARTAN
     Route: 048
     Dates: start: 20230210
  11. AZOSEMIDE [Suspect]
     Active Substance: AZOSEMIDE
     Route: 048
     Dates: start: 20230210

REACTIONS (1)
  - Cardio-respiratory arrest [Recovered/Resolved]

NARRATIVE: CASE EVENT DATE: 20230228
